FAERS Safety Report 16673317 (Version 1)
Quarter: 2019Q3

REPORT INFORMATION
  Report Type: Spontaneous
  Country: US (occurrence: US)
  Receive Date: 20190806
  Receipt Date: 20190806
  Transmission Date: 20191004
  Serious: Yes (Hospitalization, Other)
  Sender: FDA-Public Use
  Company Number: US-COLLEGIUM PHARMACEUTICAL, INC.-2019CGM00206

PATIENT
  Age: 34 Year
  Sex: Male

DRUGS (2)
  1. SUBOXONE [Suspect]
     Active Substance: BUPRENORPHINE HYDROCHLORIDE\NALOXONE HYDROCHLORIDE
     Indication: DRUG DEPENDENCE
     Dosage: TAKING LOWER DOSE THAN PRESCRIBED BY CUTTING THE FILM
     Route: 060
  2. OXYCODONE [Suspect]
     Active Substance: OXYCODONE

REACTIONS (2)
  - Drug dependence [Unknown]
  - Drug detoxification [Unknown]

NARRATIVE: CASE EVENT DATE: 2014
